FAERS Safety Report 9304984 (Version 2)
Quarter: 2013Q2

REPORT INFORMATION
  Report Type: Spontaneous
  Country: BR (occurrence: BR)
  Receive Date: 20130523
  Receipt Date: 20130612
  Transmission Date: 20140414
  Serious: Yes (Other)
  Sender: FDA-Public Use
  Company Number: BR-AMGEN-BRASP2013035691

PATIENT
  Age: 70 Year
  Sex: Female
  Weight: 61.5 kg

DRUGS (4)
  1. ENBREL [Suspect]
     Indication: RHEUMATOID ARTHRITIS
     Dosage: 50 MG, WEEKLY
     Route: 058
     Dates: start: 201210, end: 201212
  2. METHOTREXATE [Concomitant]
     Indication: RHEUMATOID ARTHRITIS
     Dosage: 1 ML (12.5 MG), ONCE WEEKLY
     Route: 058
  3. ARAVA [Concomitant]
     Indication: RHEUMATOID ARTHRITIS
     Dosage: 20 MG, WEEKLY
  4. RISEDRONATE [Concomitant]
     Indication: RHEUMATOID ARTHRITIS
     Dosage: 35 MG, ONCE WEEKLY

REACTIONS (8)
  - Immunosuppression [Unknown]
  - Visual impairment [Not Recovered/Not Resolved]
  - Urinary incontinence [Unknown]
  - Lacrimation increased [Not Recovered/Not Resolved]
  - Eye disorder [Unknown]
  - Eye irritation [Unknown]
  - Eye pruritus [Unknown]
  - Leprosy [Unknown]
